FAERS Safety Report 9477598 (Version 1)
Quarter: 2013Q3

REPORT INFORMATION
  Report Type: Spontaneous
  Country: US (occurrence: US)
  Receive Date: 20130827
  Receipt Date: 20130827
  Transmission Date: 20140515
  Serious: Yes (Hospitalization)
  Sender: FDA-Public Use
  Company Number: US-BIOGENIDEC-2013BI078948

PATIENT
  Age: 51 Year
  Sex: Female

DRUGS (3)
  1. AVONEX [Suspect]
     Indication: MULTIPLE SCLEROSIS
     Route: 030
     Dates: start: 20130113
  2. CELEBREX [Concomitant]
     Indication: ARTHRALGIA
     Route: 048
  3. CELEBREX [Concomitant]
     Indication: JOINT SWELLING
     Route: 048

REACTIONS (5)
  - Knee arthroplasty [Unknown]
  - Post procedural swelling [Not Recovered/Not Resolved]
  - Epigastric discomfort [Not Recovered/Not Resolved]
  - Procedural pain [Not Recovered/Not Resolved]
  - Fatigue [Not Recovered/Not Resolved]
